FAERS Safety Report 20393310 (Version 2)
Quarter: 2022Q1

REPORT INFORMATION
  Report Type: Spontaneous
  Country: CN (occurrence: None)
  Receive Date: 20220128
  Receipt Date: 20220203
  Transmission Date: 20220424
  Serious: Yes (Hospitalization, Other)
  Sender: FDA-Public Use
  Company Number: 2022A039101

PATIENT
  Age: 70 Year
  Sex: Female

DRUGS (3)
  1. TAGRISSO [Suspect]
     Active Substance: OSIMERTINIB
     Route: 048
     Dates: start: 20210905
  2. ANASTROZOLE [Concomitant]
     Active Substance: ANASTROZOLE
     Indication: Endocrine disorder
     Dates: start: 20210905
  3. ANASTROZOLE [Concomitant]
     Active Substance: ANASTROZOLE
     Indication: Breast cancer
     Dates: start: 20210905

REACTIONS (11)
  - Malignant neoplasm progression [Unknown]
  - RET gene mutation [Unknown]
  - Invasive ductal breast carcinoma [Unknown]
  - Breast cancer in situ [Unknown]
  - Precancerous lesion of digestive tract [Unknown]
  - Rash [Recovered/Resolved]
  - Urticaria [Recovered/Resolved]
  - Rash pruritic [Recovered/Resolved]
  - Rhinorrhoea [Unknown]
  - Sneezing [Unknown]
  - Drug ineffective [Unknown]

NARRATIVE: CASE EVENT DATE: 20210805
